FAERS Safety Report 8112718-8 (Version None)
Quarter: 2012Q1

REPORT INFORMATION
  Report Type: 
  Country: None (occurrence: None)
  Receive Date: 20120203
  Receipt Date: 20120120
  Transmission Date: 20120608
  Serious: Yes (Other)
  Sender: FDA-Public Use
  Company Number: IT-CELGENEUS-083-21880-12012203

PATIENT
  Sex: Female

DRUGS (3)
  1. CARDIOASPIRINE [Concomitant]
     Route: 048
     Dates: start: 20111201, end: 20120117
  2. LIMPIDEX [Concomitant]
     Route: 048
     Dates: start: 20090101, end: 20120117
  3. REVLIMID [Suspect]
     Indication: MANTLE CELL LYMPHOMA
     Dosage: 25 MILLIGRAM
     Route: 048
     Dates: start: 20111219, end: 20120101

REACTIONS (4)
  - PRURITUS [None]
  - RASH [None]
  - FACE OEDEMA [None]
  - BRONCHOSPASM [None]
